FAERS Safety Report 20461262 (Version 1)
Quarter: 2022Q1

REPORT INFORMATION
  Report Type: Spontaneous
  Country: US (occurrence: US)
  Receive Date: 20220211
  Receipt Date: 20220211
  Transmission Date: 20220423
  Serious: Yes (Other)
  Sender: FDA-Public Use
  Company Number: US-PFIZER INC-202200213722

PATIENT
  Age: 52 Year
  Sex: Female

DRUGS (2)
  1. VENLAFAXINE HCL [Suspect]
     Active Substance: VENLAFAXINE HYDROCHLORIDE
     Dosage: UNK UNK, 1X/DAY (QD 30 DAYS, 5, DAYS: 170 )
  2. HYDROCHLOROTHIAZIDE [Suspect]
     Active Substance: HYDROCHLOROTHIAZIDE
     Dosage: DOSAGE: QD, 30 DAYS, 5, DAYS: 170

REACTIONS (21)
  - Colitis ulcerative [Unknown]
  - Intestinal ischaemia [Unknown]
  - Diverticulitis [Unknown]
  - Major depression [Unknown]
  - Hypothyroidism [Unknown]
  - Chronic kidney disease [Unknown]
  - Anaemia macrocytic [Unknown]
  - Pernicious anaemia [Unknown]
  - Osteopenia [Unknown]
  - Vitamin B12 deficiency [Unknown]
  - Vitamin D deficiency [Unknown]
  - Type IIa hyperlipidaemia [Unknown]
  - Insomnia [Unknown]
  - Dysuria [Unknown]
  - Cardiac murmur functional [Unknown]
  - Hypertension [Unknown]
  - Post-traumatic stress disorder [Unknown]
  - Gastrooesophageal reflux disease [Unknown]
  - Hypercholesterolaemia [Unknown]
  - Peripheral vascular disorder [Unknown]
  - Anxiety disorder due to a general medical condition [Unknown]

NARRATIVE: CASE EVENT DATE: 20130621
